FAERS Safety Report 5078904-9 (Version None)
Quarter: 2006Q3

REPORT INFORMATION
  Report Type: 
  Country: None (occurrence: None)
  Receive Date: 20060809
  Receipt Date: 20060809
  Transmission Date: 20061208
  Serious: Yes (Hospitalization)
  Sender: FDA-Public Use
  Company Number: None

PATIENT
  Age: 37 Year
  Sex: Male
  Weight: 90.7194 kg

DRUGS (11)
  1. SODIUM STIBOGLUCONATE 100MG/ML ALBERT DAVID LTD. [Suspect]
     Indication: MALIGNANT MELANOMA
     Dosage: 860 MG DAY 1; 15-19; 22-2
     Route: 042
     Dates: start: 20060717, end: 20060803
  2. INTERFERON ALPHA 2B 6 MILLION UNITS/ML SHERING-PLOUGH [Suspect]
     Indication: MALIGNANT MELANOMA
     Dosage: 6.5 MILLION UNITS DAILY SQ
     Route: 058
     Dates: start: 20060731, end: 20060803
  3. LORAZEPAM [Concomitant]
  4. DIAZIDE [Concomitant]
  5. COUMADIN [Concomitant]
  6. NEXIUM [Concomitant]
  7. REGLAN [Concomitant]
  8. ATIVAN [Concomitant]
  9. DILAUDID [Concomitant]
  10. DURAGESIC-100 [Concomitant]
  11. ZOFRAN [Concomitant]

REACTIONS (4)
  - ELECTROCARDIOGRAM CHANGE [None]
  - HYPOKALAEMIA [None]
  - NAUSEA [None]
  - VOMITING [None]
